FAERS Safety Report 11127921 (Version 1)
Quarter: 2015Q2

REPORT INFORMATION
  Report Type: Spontaneous
  Country: IE (occurrence: None)
  Receive Date: 20150519
  Receipt Date: 20150519
  Transmission Date: 20150821
  Serious: Yes (Disabling)
  Sender: FDA-Public Use
  Company Number: INT_00760_2015

PATIENT
  Age: 44 Year
  Sex: Male

DRUGS (2)
  1. CISPLATIN (CISPLATIN) (HQ SPECIALTY) [Suspect]
     Active Substance: CISPLATIN
     Indication: TESTICULAR SEMINOMA (PURE) STAGE I
  2. ETOPOSIDE. [Concomitant]
     Active Substance: ETOPOSIDE

REACTIONS (3)
  - Peripheral sensorimotor neuropathy [None]
  - Lhermitte^s sign [None]
  - Deep vein thrombosis [None]
